FAERS Safety Report 12666905 (Version 1)
Quarter: 2016Q3

REPORT INFORMATION
  Report Type: Spontaneous
  Country: US (occurrence: None)
  Receive Date: 20160818
  Receipt Date: 20160818
  Transmission Date: 20161109
  Serious: Yes (Other)
  Sender: FDA-Public Use
  Company Number: None

PATIENT
  Age: 68 Year
  Sex: Female
  Weight: 65.77 kg

DRUGS (6)
  1. 1 A DAY VITAMINS [Concomitant]
  2. TYLENOL [Concomitant]
     Active Substance: ACETAMINOPHEN
  3. MAXZIDE [Concomitant]
     Active Substance: HYDROCHLOROTHIAZIDE\TRIAMTERENE
  4. VITAMIN B12 [Suspect]
     Active Substance: CYANOCOBALAMIN
  5. ALLOURINOL [Concomitant]
  6. DEXILANT [Concomitant]
     Active Substance: DEXLANSOPRAZOLE

REACTIONS (19)
  - Dizziness [None]
  - Eye swelling [None]
  - Peripheral swelling [None]
  - Alopecia [None]
  - Fatigue [None]
  - Stomatitis [None]
  - Dysphagia [None]
  - Hypertension [None]
  - Abdominal distension [None]
  - Somnolence [None]
  - Cough [None]
  - Gingival discolouration [None]
  - Palpitations [None]
  - Pruritus [None]
  - Increased appetite [None]
  - Pollakiuria [None]
  - Blindness unilateral [None]
  - Injection site mass [None]
  - Product quality issue [None]

NARRATIVE: CASE EVENT DATE: 20160216
